APPROVED DRUG PRODUCT: AZELAIC ACID
Active Ingredient: AZELAIC ACID
Strength: 15%
Dosage Form/Route: GEL;TOPICAL
Application: A208011 | Product #001 | TE Code: AB
Applicant: ACTAVIS LABORATORIES UT INC
Approved: Nov 19, 2018 | RLD: No | RS: No | Type: RX